FAERS Safety Report 11140163 (Version 1)
Quarter: 2015Q2

REPORT INFORMATION
  Report Type: Spontaneous
  Country: US (occurrence: US)
  Receive Date: 20150525
  Receipt Date: 20150525
  Transmission Date: 20150821
  Serious: Yes (Other)
  Sender: FDA-Public Use
  Company Number: US-JNJFOC-20121108316

PATIENT
  Age: 13 Year
  Sex: Male
  Weight: 50.8 kg

DRUGS (5)
  1. DIPHENHYDRAMINE [Concomitant]
     Active Substance: DIPHENHYDRAMINE
     Indication: SLEEP DISORDER THERAPY
     Dosage: AT BEDTIME
     Route: 065
  2. GUANFACINE. [Concomitant]
     Active Substance: GUANFACINE
     Route: 065
  3. INSULIN [Concomitant]
     Active Substance: INSULIN NOS
     Indication: DIABETES MELLITUS
     Route: 065
  4. RISPERIDONE. [Suspect]
     Active Substance: RISPERIDONE
     Indication: PSYCHOTIC DISORDER
     Dosage: AT BEDTIME FOR CONSECUTIVE 3 DAYS
     Route: 065
  5. ERGOCALCIFEROL. [Concomitant]
     Active Substance: ERGOCALCIFEROL
     Route: 065

REACTIONS (1)
  - Hyperglycaemia [Recovered/Resolved]
